FAERS Safety Report 12149821 (Version 2)
Quarter: 2016Q1

REPORT INFORMATION
  Report Type: Spontaneous
  Country: BR (occurrence: BR)
  Receive Date: 20160304
  Receipt Date: 20160323
  Transmission Date: 20160526
  Serious: Yes (Death)
  Sender: FDA-Public Use
  Company Number: BR-ACTAVIS-2016-04627

PATIENT
  Age: 69 Year
  Sex: Female

DRUGS (2)
  1. DOXORUBICIN (UNKNOWN) [Suspect]
     Active Substance: DOXORUBICIN
     Indication: EXTRASKELETAL OSTEOSARCOMA
     Dosage: UNK UNK, CYCLICAL
     Route: 065
  2. CISPLATIN (UNKNOWN) [Suspect]
     Active Substance: CISPLATIN
     Indication: EXTRASKELETAL OSTEOSARCOMA
     Dosage: UNK UNK, CYCLICAL
     Route: 065

REACTIONS (2)
  - Sepsis [Fatal]
  - Neutropenia [Fatal]
